FAERS Safety Report 9231015 (Version 2)
Quarter: 2013Q2

REPORT INFORMATION
  Report Type: Spontaneous
  Country: AU (occurrence: AU)
  Receive Date: 20130415
  Receipt Date: 20130507
  Transmission Date: 20140414
  Serious: Yes (Death, Other)
  Sender: FDA-Public Use
  Company Number: AU-ROCHE-1210421

PATIENT
  Age: 57 Year
  Sex: Male

DRUGS (7)
  1. MYCOPHENOLATE MOFETIL [Suspect]
     Indication: PROPHYLAXIS AGAINST TRANSPLANT REJECTION
     Route: 065
  2. MYCOPHENOLATE MOFETIL [Suspect]
     Dosage: DECREASED TO
     Route: 065
  3. MYCOPHENOLATE MOFETIL [Suspect]
     Dosage: REDUCED FURTHER
     Route: 065
  4. PREDNISONE [Suspect]
     Indication: PROPHYLAXIS AGAINST TRANSPLANT REJECTION
     Route: 065
  5. PREDNISONE [Suspect]
     Dosage: INCREASED TO
     Route: 065
  6. TACROLIMUS [Suspect]
     Indication: PROPHYLAXIS AGAINST TRANSPLANT REJECTION
     Route: 065
  7. TACROLIMUS [Suspect]
     Dosage: REDUCED TO
     Route: 065

REACTIONS (5)
  - Pneumocystis jirovecii infection [Fatal]
  - Chronic allograft nephropathy [Unknown]
  - Kidney transplant rejection [Unknown]
  - Drug ineffective [Unknown]
  - Lung infection [Recovered/Resolved]
